FAERS Safety Report 18375782 (Version 1)
Quarter: 2020Q4

REPORT INFORMATION
  Report Type: Spontaneous
  Country: US (occurrence: US)
  Receive Date: 20201009
  Receipt Date: 20201009
  Transmission Date: 20210114
  Serious: No
  Sender: FDA-Public Use
  Company Number: None

PATIENT
  Age: 74 Year
  Sex: Male
  Weight: 103.05 kg

DRUGS (7)
  1. METOPROLOL SUCCINATE ER 25MG [Concomitant]
  2. LISINOPRIL. [Concomitant]
     Active Substance: LISINOPRIL
  3. FLUICASONE PROPIONATE 50MCG/ACT [Concomitant]
  4. PROCHLORPERAZINE 10MG [Concomitant]
  5. ATORVASTATIN 40MG [Concomitant]
     Active Substance: ATORVASTATIN
  6. CAPECITABINE. [Suspect]
     Active Substance: CAPECITABINE
     Indication: PANCREATIC CARCINOMA
     Route: 048
     Dates: start: 20200818
  7. ONDANSETRON 4MG [Concomitant]
     Active Substance: ONDANSETRON

REACTIONS (2)
  - Fatigue [None]
  - Neuropathy peripheral [None]

NARRATIVE: CASE EVENT DATE: 20201009
